FAERS Safety Report 4855193-9 (Version None)
Quarter: 2005Q4

REPORT INFORMATION
  Report Type: 
  Country: None (occurrence: None)
  Receive Date: 20051215
  Receipt Date: 20050916
  Transmission Date: 20060501
  Serious: Yes (Hospitalization, Disabling)
  Sender: FDA-Public Use
  Company Number: US-MERCK-0509USA02675

PATIENT
  Age: 51 Year
  Sex: Female
  Weight: 48 kg

DRUGS (12)
  1. VIOXX [Suspect]
     Indication: RHEUMATOID ARTHRITIS
     Route: 048
     Dates: start: 19990601, end: 20040901
  2. ALBUTEROL [Concomitant]
     Indication: ASTHMA
     Route: 065
  3. ASPIRIN [Concomitant]
     Indication: PAIN
     Route: 048
     Dates: start: 19990101
  4. ATENOLOL [Concomitant]
     Indication: CARDIOVASCULAR DISORDER
     Route: 065
     Dates: start: 19960101
  5. BEXTRA [Concomitant]
     Indication: RHEUMATOID ARTHRITIS
     Route: 065
     Dates: start: 19990101, end: 20020101
  6. CELEBREX [Concomitant]
     Route: 065
     Dates: end: 20021230
  7. FLEXERIL [Concomitant]
     Route: 065
     Dates: start: 19960101
  8. METHOCARBAMOL [Concomitant]
     Route: 065
     Dates: start: 20040101
  9. PREDNISONE [Concomitant]
     Route: 065
  10. PREMARIN [Concomitant]
     Indication: HORMONE REPLACEMENT THERAPY
     Route: 065
     Dates: start: 19900101
  11. PRILOSEC [Concomitant]
     Indication: GASTRIC DISORDER
     Route: 065
  12. RANITIDINE [Concomitant]
     Indication: GASTRIC DISORDER
     Route: 065

REACTIONS (28)
  - AMNESIA [None]
  - ANGINA PECTORIS [None]
  - BACK DISORDER [None]
  - BACTERIAL INFECTION [None]
  - BLOOD CHOLESTEROL INCREASED [None]
  - BREAST NEOPLASM [None]
  - CARDIAC FAILURE CONGESTIVE [None]
  - CEREBROVASCULAR ACCIDENT [None]
  - CORONARY ARTERY DISEASE [None]
  - COUGH [None]
  - DEPRESSION [None]
  - DYSPNOEA [None]
  - EAR INFECTION [None]
  - EYE INFECTION [None]
  - FUNGAL INFECTION [None]
  - GALLBLADDER DISORDER [None]
  - GASTRIC DISORDER [None]
  - GASTROOESOPHAGEAL REFLUX DISEASE [None]
  - HYPERSENSITIVITY [None]
  - HYPERTENSION [None]
  - INTESTINAL OBSTRUCTION [None]
  - MEMORY IMPAIRMENT [None]
  - MUSCULOSKELETAL DISORDER [None]
  - MYOCARDIAL INFARCTION [None]
  - NASOPHARYNGITIS [None]
  - OEDEMA PERIPHERAL [None]
  - RHEUMATOID ARTHRITIS [None]
  - URINARY TRACT INFECTION [None]
